FAERS Safety Report 11968223 (Version 1)
Quarter: 2016Q1

REPORT INFORMATION
  Report Type: Spontaneous
  Country: FR (occurrence: FR)
  Receive Date: 20160127
  Receipt Date: 20160127
  Transmission Date: 20160526
  Serious: No
  Sender: FDA-Public Use
  Company Number: FR-ROCHE-1700518

PATIENT
  Age: 34 Year
  Sex: Female

DRUGS (1)
  1. TAMIFLU [Suspect]
     Active Substance: OSELTAMIVIR PHOSPHATE
     Indication: PROPHYLAXIS
     Route: 048
     Dates: start: 20160119, end: 20160121

REACTIONS (3)
  - Maternal exposure during pregnancy [Unknown]
  - Dyspnoea [Recovering/Resolving]
  - Eye pain [Recovering/Resolving]
